FAERS Safety Report 6558770-2 (Version None)
Quarter: 2010Q1

REPORT INFORMATION
  Report Type: 
  Country: None (occurrence: None)
  Receive Date: 20100129
  Receipt Date: 20100121
  Transmission Date: 20100710
  Serious: Yes (Other)
  Sender: FDA-Public Use
  Company Number: GB-JNJCH-2010002354

PATIENT
  Sex: Male

DRUGS (2)
  1. NICORETTE INVISI 25MG [Suspect]
     Indication: DRUG USE FOR UNKNOWN INDICATION
     Route: 062
  2. NICOTINE [Suspect]
     Indication: DRUG USE FOR UNKNOWN INDICATION
     Dosage: TEXT:UNSPECIFIED
     Route: 048

REACTIONS (5)
  - APPLICATION SITE ERYTHEMA [None]
  - GENERALISED ERYTHEMA [None]
  - OEDEMA PERIPHERAL [None]
  - PARAESTHESIA [None]
  - RASH [None]
